FAERS Safety Report 12492420 (Version 1)
Quarter: 2016Q2

REPORT INFORMATION
  Report Type: Spontaneous
  Country: DK (occurrence: DK)
  Receive Date: 20160623
  Receipt Date: 20160623
  Transmission Date: 20160815
  Serious: Yes (Other)
  Sender: FDA-Public Use
  Company Number: DK-PFIZER INC-2016312093

PATIENT
  Age: 70 Year
  Sex: Female

DRUGS (3)
  1. CORDARONE [Suspect]
     Active Substance: AMIODARONE HYDROCHLORIDE
     Dosage: 200 MG, DAILY
     Route: 048
  2. CORDARONE [Suspect]
     Active Substance: AMIODARONE HYDROCHLORIDE
     Dosage: 50 MG, DAILY(PER DAY)
     Route: 048
     Dates: end: 20130225
  3. CORDARONE [Suspect]
     Active Substance: AMIODARONE HYDROCHLORIDE
     Indication: ARRHYTHMIA
     Dosage: 400 MG, 2X/DAY
     Route: 048
     Dates: start: 20120531

REACTIONS (3)
  - Pulmonary fibrosis [Recovered/Resolved]
  - Tracheomalacia [Unknown]
  - Bronchomalacia [Unknown]

NARRATIVE: CASE EVENT DATE: 20130118
